FAERS Safety Report 8933972 (Version 1)
Quarter: 2012Q4

REPORT INFORMATION
  Report Type: 
  Country: DK (occurrence: FR)
  Receive Date: 20121129
  Receipt Date: 20121129
  Transmission Date: 20130627
  Serious: Yes (Hospitalization)
  Sender: FDA-Public Use
  Company Number: FR-FRI-1000040633

PATIENT
  Sex: Male

DRUGS (9)
  1. ESCITALOPRAM [Suspect]
     Dosage: 40 mg
     Route: 048
  2. CLOPIXOL [Suspect]
     Dosage: 20 mg
     Route: 048
     Dates: start: 20111128
  3. LOXAPAC [Suspect]
     Dosage: 100 mg
     Route: 048
     Dates: start: 20111219
  4. RISPERDAL [Suspect]
     Dosage: 12 mg
     Route: 048
     Dates: start: 20111121
  5. PARKINANE [Suspect]
     Indication: PARKINSON^S DISEASE
     Dosage: 10 mg
     Route: 048
     Dates: start: 20111123
  6. ABILIFY [Suspect]
     Dosage: 15 mg
     Route: 048
     Dates: start: 20120627
  7. TRIVASTAL [Concomitant]
     Indication: PARKINSON^S DISEASE
     Route: 048
  8. VALIUM [Concomitant]
     Dosage: 15 mg
     Route: 048
  9. LEVOTHYROX [Concomitant]
     Indication: HYPOTHYROIDISM
     Dosage: 50 mcg
     Route: 048

REACTIONS (2)
  - Angle closure glaucoma [Not Recovered/Not Resolved]
  - Overdose [Not Recovered/Not Resolved]
